FAERS Safety Report 7046430-3 (Version None)
Quarter: 2010Q4

REPORT INFORMATION
  Report Type: 
  Country: None (occurrence: None)
  Receive Date: 20101014
  Receipt Date: 20101007
  Transmission Date: 20110411
  Serious: No
  Sender: FDA-Public Use
  Company Number: US-PFIZER INC-2010128094

PATIENT
  Age: 5 Year
  Sex: Female

DRUGS (1)
  1. ZOLOFT [Suspect]
     Indication: SELECTIVE MUTISM
     Dosage: 25 MG, DAILY

REACTIONS (2)
  - INCREASED APPETITE [None]
  - WEIGHT INCREASED [None]
